FAERS Safety Report 7225981-2 (Version None)
Quarter: 2011Q1

REPORT INFORMATION
  Report Type: 
  Country: None (occurrence: None)
  Receive Date: 20110113
  Receipt Date: 20110112
  Transmission Date: 20110831
  Serious: Yes (Hospitalization)
  Sender: FDA-Public Use
  Company Number: US-AMGEN-USASP2010011807

PATIENT

DRUGS (13)
  1. NORCO [Concomitant]
  2. DULCOLAX [Concomitant]
  3. CORTICOSTEROIDS [Concomitant]
     Indication: IDIOPATHIC THROMBOCYTOPENIC PURPURA
  4. KEPPRA [Concomitant]
  5. PRILOSEC [Concomitant]
  6. TOPAMAX [Concomitant]
  7. NPLATE [Suspect]
     Indication: IDIOPATHIC THROMBOCYTOPENIC PURPURA
     Dosage: 2 A?G/KG, QWK
     Route: 058
     Dates: start: 20090610, end: 20090812
  8. DEPAKOTE [Concomitant]
  9. VITAMIN A [Concomitant]
  10. MILK OF MAGNESIA [Concomitant]
  11. PREDNISONE [Concomitant]
  12. ZOFRAN [Concomitant]
  13. TYLENOL (CAPLET) [Concomitant]

REACTIONS (6)
  - APHASIA [None]
  - AMNESIA [None]
  - PULMONARY EMBOLISM [None]
  - TREMOR [None]
  - DEEP VEIN THROMBOSIS [None]
  - HAEMATOCHEZIA [None]
